FAERS Safety Report 6465284-7 (Version None)
Quarter: 2009Q4

REPORT INFORMATION
  Report Type: 
  Country: None (occurrence: None)
  Receive Date: 20091201
  Receipt Date: 20090129
  Transmission Date: 20100525
  Serious: No
  Sender: FDA-Public Use
  Company Number: US-AMGEN-KDL238091

PATIENT
  Sex: Female

DRUGS (2)
  1. ENBREL [Suspect]
     Indication: PSORIATIC ARTHROPATHY
     Route: 058
     Dates: start: 20040101
  2. ENBREL [Suspect]
     Indication: PSORIASIS

REACTIONS (7)
  - FALL [None]
  - FIBULA FRACTURE [None]
  - HAND DEFORMITY [None]
  - INCISION SITE COMPLICATION [None]
  - MAMMOPLASTY [None]
  - PSORIATIC ARTHROPATHY [None]
  - SCAR PAIN [None]
